FAERS Safety Report 21767803 (Version 1)
Quarter: 2022Q4

REPORT INFORMATION
  Report Type: Spontaneous
  Country: CA (occurrence: CA)
  Receive Date: 20221222
  Receipt Date: 20221222
  Transmission Date: 20230112
  Serious: Yes (Other)
  Sender: FDA-Public Use
  Company Number: CA-PFIZER INC-202200771607

PATIENT
  Age: 32 Year
  Sex: Female

DRUGS (4)
  1. RUXIENCE [Suspect]
     Active Substance: RITUXIMAB-PVVR
     Indication: Granulomatosis with polyangiitis
     Dosage: 1000 MG, 2 WEEKS APART
     Route: 042
     Dates: start: 20210308, end: 20210322
  2. RUXIENCE [Suspect]
     Active Substance: RITUXIMAB-PVVR
     Dosage: 1000 MG, 2 WEEKS APART
     Route: 042
     Dates: start: 20210322
  3. RUXIENCE [Suspect]
     Active Substance: RITUXIMAB-PVVR
     Dosage: 500 MG EVERY 6 MONTHS
     Route: 042
     Dates: start: 20220606
  4. RUXIENCE [Suspect]
     Active Substance: RITUXIMAB-PVVR
     Dosage: 500 MG X 1 AND THEN EVERY 6 MONTHS
     Route: 042
     Dates: start: 20220609

REACTIONS (4)
  - Iron deficiency [Unknown]
  - Off label use [Unknown]
  - Off label use [Unknown]
  - COVID-19 [Unknown]

NARRATIVE: CASE EVENT DATE: 20220609
